FAERS Safety Report 4377328-7 (Version None)
Quarter: 2004Q2

REPORT INFORMATION
  Report Type: 
  Country: None (occurrence: None)
  Receive Date: 20040609
  Receipt Date: 20040525
  Transmission Date: 20050107
  Serious: Yes (Death, Hospitalization)
  Sender: FDA-Public Use
  Company Number: GB-JNJFOC-20040506325

PATIENT
  Age: 90 Year
  Sex: Male

DRUGS (1)
  1. PARACETAMOL (PARACETAMOL) TABLETS [Suspect]
     Indication: COMPLETED SUICIDE
     Dosage: 64 TABLETS
     Dates: start: 20020925, end: 20020925

REACTIONS (7)
  - ALCOHOL USE [None]
  - ANOREXIA [None]
  - COMPLETED SUICIDE [None]
  - GENERAL PHYSICAL HEALTH DETERIORATION [None]
  - HEPATIC FAILURE [None]
  - INTENTIONAL OVERDOSE [None]
  - RENAL FAILURE [None]
